FAERS Safety Report 8974267 (Version 1)
Quarter: 2012Q4

REPORT INFORMATION
  Report Type: Spontaneous
  Country: US (occurrence: None)
  Receive Date: 20121217
  Receipt Date: 20121217
  Transmission Date: 20130627
  Serious: Yes (Hospitalization, Disabling, Other)
  Sender: FDA-Public Use
  Company Number: None

PATIENT
  Age: 30 Year
  Sex: Male
  Weight: 89.36 kg

DRUGS (1)
  1. INVEGA SUSTENNA [Suspect]
     Dosage: varied from 234 to 154 to 117mg
     Dates: start: 20120909, end: 20121129

REACTIONS (16)
  - Salivary hypersecretion [None]
  - Tremor [None]
  - Speech disorder [None]
  - Dysphagia [None]
  - Mastication disorder [None]
  - Muscle tightness [None]
  - Gait disturbance [None]
  - Drooling [None]
  - Dystonia [None]
  - Restlessness [None]
  - Rhabdomyolysis [None]
  - Dialysis [None]
  - Hypertension [None]
  - Pneumonia [None]
  - Heart rate increased [None]
  - Fluid retention [None]
